FAERS Safety Report 26094423 (Version 1)
Quarter: 2025Q4

REPORT INFORMATION
  Report Type: Report from Study
  Country: US (occurrence: US)
  Receive Date: 20251126
  Receipt Date: 20251126
  Transmission Date: 20260117
  Serious: Yes (Other)
  Sender: TEVA
  Company Number: US-TEVA-VS-3395928

PATIENT
  Age: 46 Year
  Sex: Female

DRUGS (1)
  1. AUSTEDO [Suspect]
     Active Substance: DEUTETRABENAZINE
     Indication: Tardive dyskinesia
     Route: 048
     Dates: start: 202511, end: 202511

REACTIONS (2)
  - Suicidal ideation [Unknown]
  - Product use issue [Unknown]

NARRATIVE: CASE EVENT DATE: 20251101
